FAERS Safety Report 6247393-0 (Version None)
Quarter: 2009Q2

REPORT INFORMATION
  Report Type: 
  Country: None (occurrence: None)
  Receive Date: 20090626
  Receipt Date: 20090618
  Transmission Date: 20091009
  Serious: Yes (Other)
  Sender: FDA-Public Use
  Company Number: B0580738A

PATIENT
  Sex: Male

DRUGS (4)
  1. AUGMENTIN '125' [Suspect]
     Indication: ERYSIPELAS
     Route: 048
     Dates: start: 20090501
  2. CARBAMAZEPINE [Concomitant]
     Indication: DRUG USE FOR UNKNOWN INDICATION
     Dosage: 700MG PER DAY
     Route: 048
  3. PENIDURAL [Concomitant]
     Indication: DRUG USE FOR UNKNOWN INDICATION
     Route: 030
  4. DIPIPERON [Concomitant]
     Indication: DRUG USE FOR UNKNOWN INDICATION
     Dosage: 84MG PER DAY
     Route: 048

REACTIONS (1)
  - EPILEPSY [None]
